FAERS Safety Report 24354247 (Version 4)
Quarter: 2024Q4

REPORT INFORMATION
  Report Type: Spontaneous
  Country: US (occurrence: US)
  Receive Date: 20240923
  Receipt Date: 20241122
  Transmission Date: 20250115
  Serious: No
  Sender: PFIZER
  Company Number: US-PFIZER INC-PV202400122202

PATIENT
  Age: 96 Year
  Sex: Male
  Weight: 69.4 kg

DRUGS (5)
  1. ALDACTONE [Suspect]
     Active Substance: SPIRONOLACTONE
     Indication: Cardiac amyloidosis
     Dosage: 12.5 MG, 1X/DAY (TAKE 0.5 TABLETS 1 TIME EACH DAY)
     Route: 048
     Dates: start: 20240626
  2. ALDACTONE [Suspect]
     Active Substance: SPIRONOLACTONE
     Indication: Heart failure with reduced ejection fraction
  3. LIPITOR [Concomitant]
     Active Substance: ATORVASTATIN CALCIUM
     Dosage: 40 MG, TAKE 1 TABLET AT BEDTIME
     Route: 048
     Dates: start: 20240221
  4. LEVOXYL [Concomitant]
     Active Substance: LEVOTHYROXINE SODIUM
     Dosage: 125 UG, TAKE 1 TABLET BEFORE BREAKFAST
     Route: 048
  5. SYNTHROID [Concomitant]
     Active Substance: LEVOTHYROXINE SODIUM
     Dosage: 125 UG, TAKE 1 TABLET BEFORE BREAKFAST
     Route: 048

REACTIONS (2)
  - General physical health deterioration [Unknown]
  - Off label use [Unknown]

NARRATIVE: CASE EVENT DATE: 20240101
